FAERS Safety Report 19605543 (Version 1)
Quarter: 2021Q3

REPORT INFORMATION
  Report Type: Spontaneous
  Country: HU (occurrence: HU)
  Receive Date: 20210723
  Receipt Date: 20210723
  Transmission Date: 20211014
  Serious: Yes (Death, Other)
  Sender: FDA-Public Use
  Company Number: HU-BAUSCH-BL-2021-024775

PATIENT
  Age: 55 Year
  Sex: Male

DRUGS (6)
  1. DEXAMETHASONE. [Suspect]
     Active Substance: DEXAMETHASONE
     Indication: PLASMA CELL MYELOMA
     Route: 065
  2. DARATUMUMAB [Suspect]
     Active Substance: DARATUMUMAB
     Indication: PLASMA CELL MYELOMA
     Route: 065
  3. CYTARABINE. [Concomitant]
     Active Substance: CYTARABINE
     Indication: NEUROLOGICAL SYMPTOM
     Route: 065
  4. BORTEZOMIB. [Suspect]
     Active Substance: BORTEZOMIB
     Indication: PLASMA CELL MYELOMA
     Route: 065
  5. POMALIDOMIDE [Suspect]
     Active Substance: POMALIDOMIDE
     Indication: PLASMA CELL MYELOMA
     Route: 048
     Dates: start: 202001
  6. METHOTREXATE. [Concomitant]
     Active Substance: METHOTREXATE
     Indication: NEUROLOGICAL SYMPTOM
     Route: 065

REACTIONS (4)
  - Sepsis [Unknown]
  - Mastoiditis [Unknown]
  - Urosepsis [Unknown]
  - Pneumonia [Fatal]

NARRATIVE: CASE EVENT DATE: 202008
